FAERS Safety Report 5116882-4 (Version None)
Quarter: 2006Q3

REPORT INFORMATION
  Report Type: 
  Country: None (occurrence: None)
  Receive Date: 20060928
  Receipt Date: 20060824
  Transmission Date: 20061208
  Serious: Yes (Other)
  Sender: FDA-Public Use
  Company Number: 2006UW16813

PATIENT
  Age: 77 Year
  Sex: Female
  Weight: 56.8 kg

DRUGS (6)
  1. TOPROL-XL [Suspect]
     Indication: HYPERTENSION
     Route: 048
  2. ALEVE [Suspect]
     Indication: PAIN IN EXTREMITY
     Route: 048
     Dates: start: 20060813, end: 20060813
  3. ASPIRIN [Suspect]
     Route: 048
  4. ATACAND [Concomitant]
     Route: 048
  5. SYNTHROID [Concomitant]
     Route: 048
  6. PREMARIN [Concomitant]
     Route: 048

REACTIONS (14)
  - ANGER [None]
  - ASTHENIA [None]
  - BREAST PAIN [None]
  - CHEST PAIN [None]
  - DRY MOUTH [None]
  - DYSPNOEA [None]
  - FATIGUE [None]
  - FEELING ABNORMAL [None]
  - HYPERSENSITIVITY [None]
  - PAIN [None]
  - PAIN IN EXTREMITY [None]
  - PERSONALITY CHANGE [None]
  - SWELLING FACE [None]
  - SWOLLEN TONGUE [None]
